FAERS Safety Report 19690617 (Version 1)
Quarter: 2021Q3

REPORT INFORMATION
  Report Type: Spontaneous
  Country: US (occurrence: US)
  Receive Date: 20210812
  Receipt Date: 20210812
  Transmission Date: 20211014
  Serious: Yes (Death, Hospitalization)
  Sender: FDA-Public Use
  Company Number: None

PATIENT
  Sex: Female
  Weight: 47.5 kg

DRUGS (1)
  1. VINCRISTINE SULFATE. [Suspect]
     Active Substance: VINCRISTINE SULFATE

REACTIONS (5)
  - Pelvic pain [None]
  - Peripheral swelling [None]
  - Ulcer [None]
  - Scrotal swelling [None]
  - Apnoea [None]

NARRATIVE: CASE EVENT DATE: 20210711
